FAERS Safety Report 12955923 (Version 2)
Quarter: 2016Q4

REPORT INFORMATION
  Report Type: Spontaneous
  Country: NO (occurrence: NO)
  Receive Date: 20161118
  Receipt Date: 20161123
  Transmission Date: 20170207
  Serious: Yes (Hospitalization, Other)
  Sender: FDA-Public Use
  Company Number: NO-GLAXOSMITHKLINE-NO2016GSK168218

PATIENT
  Age: 40 Year
  Sex: Female

DRUGS (2)
  1. NICOTINELL FRUIT NICOTINE GUM [Suspect]
     Active Substance: NICOTINE
     Indication: SMOKING CESSATION THERAPY
     Dosage: 4 MG, PRN
     Route: 048
     Dates: start: 20120901
  2. NICOTINELL FRUIT NICOTINE GUM [Suspect]
     Active Substance: NICOTINE
     Dosage: 2 MG, UNK
     Route: 048

REACTIONS (5)
  - Arrhythmia [Recovered/Resolved]
  - Cardiac ablation [Recovered/Resolved]
  - Intentional product use issue [Not Recovered/Not Resolved]
  - Nicotine dependence [Not Recovered/Not Resolved]
  - Incorrect drug administration duration [Not Recovered/Not Resolved]

NARRATIVE: CASE EVENT DATE: 20120901
